FAERS Safety Report 13376910 (Version 1)
Quarter: 2017Q1

REPORT INFORMATION
  Report Type: Spontaneous
  Country: US (occurrence: US)
  Receive Date: 20170328
  Receipt Date: 20170328
  Transmission Date: 20170429
  Serious: Yes (Other)
  Sender: FDA-Public Use
  Company Number: None

PATIENT
  Age: 44 Year
  Sex: Female
  Weight: 67.95 kg

DRUGS (7)
  1. CELEBREX [Concomitant]
     Active Substance: CELECOXIB
  2. ZOLOFT [Concomitant]
     Active Substance: SERTRALINE HYDROCHLORIDE
  3. SENNA LAXATIVE [Concomitant]
     Active Substance: SENNOSIDES
  4. HYDROMORPHONE HCL 2MG [Suspect]
     Active Substance: HYDROMORPHONE HYDROCHLORIDE
     Indication: HIP ARTHROPLASTY
     Dosage: ?          QUANTITY:1 TABLET(S);?
     Route: 048
     Dates: start: 20170324, end: 20170328
  5. VITAMIN D3 [Concomitant]
     Active Substance: CHOLECALCIFEROL
  6. TYLENOL [Concomitant]
     Active Substance: ACETAMINOPHEN
  7. TRAZODONE [Concomitant]
     Active Substance: TRAZODONE HYDROCHLORIDE

REACTIONS (5)
  - Dizziness [None]
  - Blood pressure decreased [None]
  - Nausea [None]
  - Flushing [None]
  - Syncope [None]

NARRATIVE: CASE EVENT DATE: 20170328
